FAERS Safety Report 21378450 (Version 1)
Quarter: 2022Q3

REPORT INFORMATION
  Report Type: Spontaneous
  Country: US (occurrence: None)
  Receive Date: 20220927
  Receipt Date: 20220927
  Transmission Date: 20221027
  Serious: Yes (Other)
  Sender: FDA-Public Use
  Company Number: US-Hikma Pharmaceuticals USA Inc.-US-H14001-22-02377

PATIENT
  Sex: Female

DRUGS (1)
  1. OXYMORPHONE [Suspect]
     Active Substance: OXYMORPHONE
     Indication: Product used for unknown indication
     Dosage: UNKNOWN
     Route: 065

REACTIONS (10)
  - Spinal cord herniation [Unknown]
  - Arthritis [Unknown]
  - Sciatica [Unknown]
  - Pain [Unknown]
  - Mobility decreased [Unknown]
  - Mood altered [Unknown]
  - Drug dependence [Unknown]
  - Constipation [Unknown]
  - Drug ineffective [Unknown]
  - Malaise [Unknown]
